FAERS Safety Report 5071595-2 (Version None)
Quarter: 2006Q3

REPORT INFORMATION
  Report Type: 
  Country: None (occurrence: None)
  Receive Date: 20060801
  Receipt Date: 20060714
  Transmission Date: 20061208
  Serious: Yes (Hospitalization)
  Sender: FDA-Public Use
  Company Number: USA0507102089

PATIENT
  Age: 61 Year
  Sex: Female

DRUGS (13)
  1. FORTEO [Suspect]
     Indication: OSTEOPENIA
     Dosage: 20 DAILY (1/D)
     Dates: start: 20050403
  2. COUMADIN [Concomitant]
  3. ADDERALL XR 10 [Concomitant]
  4. RITALIN LA [Concomitant]
  5. CLONAZEPAM [Concomitant]
  6. SINGULAIR [Concomitant]
  7. TOPROL-XL [Concomitant]
  8. METFORMN (METFORMIN) [Concomitant]
  9. ZYRTEC [Concomitant]
  10. NEXIUM [Concomitant]
  11. THYROID TAB [Concomitant]
  12. TRILEPTAL [Concomitant]
  13. FORTEO PEN,250MCG/ML(3ML) (FORTEO PEN 250MCG/ML (3ML)) PEN,DISOPOSABLE [Concomitant]

REACTIONS (11)
  - AMNESIA [None]
  - DEVICE FAILURE [None]
  - DRUG INTERACTION [None]
  - DYSARTHRIA [None]
  - FALL [None]
  - INJECTION SITE BRUISING [None]
  - INJECTION SITE ERYTHEMA [None]
  - INJECTION SITE HAEMORRHAGE [None]
  - OXYGEN CONSUMPTION DECREASED [None]
  - PHARMACEUTICAL PRODUCT COMPLAINT [None]
  - URINARY TRACT INFECTION [None]
